FAERS Safety Report 23734855 (Version 1)
Quarter: 2024Q2

REPORT INFORMATION
  Report Type: Report from Study
  Country: DE (occurrence: DE)
  Receive Date: 20240412
  Receipt Date: 20240412
  Transmission Date: 20240715
  Serious: Yes (Hospitalization)
  Sender: FDA-Public Use
  Company Number: DE-ABBVIE-5713970

PATIENT
  Age: 59 Year
  Sex: Female

DRUGS (4)
  1. HUMIRA [Suspect]
     Active Substance: ADALIMUMAB
     Indication: Rheumatoid arthritis
     Route: 058
     Dates: start: 201507, end: 201510
  2. METHOTREXATE SODIUM [Concomitant]
     Active Substance: METHOTREXATE SODIUM
     Indication: Rheumatoid arthritis
     Dosage: (MTX) - STOP DATE TEXT: BETWEEN12 JUL 2017 AND 16 FEB 2018
     Dates: start: 20150713
  3. METHOTREXATE SODIUM [Concomitant]
     Active Substance: METHOTREXATE SODIUM
     Indication: Rheumatoid arthritis
     Dosage: (MTX) - START DATE BETWEEN 12 JUL 2017 AND 16 FEB 2018?(MTX) - STOP DATE BETWEEN 08 JUL 2022 AND ...
  4. METHOTREXATE SODIUM [Concomitant]
     Active Substance: METHOTREXATE SODIUM
     Indication: Rheumatoid arthritis
     Dosage: START DATE BETWEEN 12 JAN 2023 AND 07 JUL 2023

REACTIONS (1)
  - Stoma closure [Unknown]

NARRATIVE: CASE EVENT DATE: 20221128
